FAERS Safety Report 5536292-5 (Version None)
Quarter: 2007Q4

REPORT INFORMATION
  Report Type: 
  Country: None (occurrence: None)
  Receive Date: 20071206
  Receipt Date: 20071110
  Transmission Date: 20080405
  Serious: No
  Sender: FDA-Public Use
  Company Number: US-BOEHRINGER INGELHEIM PHARMACEUTICALS, INC.-2007-BP-24509BP

PATIENT
  Sex: Female

DRUGS (1)
  1. MIRAPEX [Suspect]

REACTIONS (2)
  - SEGMENTED HYALINISING VASCULITIS [None]
  - SKIN DISORDER [None]
